FAERS Safety Report 11153039 (Version 5)
Quarter: 2016Q3

REPORT INFORMATION
  Report Type: Spontaneous
  Country: JP (occurrence: JP)
  Receive Date: 20150601
  Receipt Date: 20160830
  Transmission Date: 20161109
  Serious: Yes (Other)
  Sender: FDA-Public Use
  Company Number: PHJP2015JP008669

PATIENT
  Age: 73 Year
  Sex: Female
  Weight: 60 kg

DRUGS (1)
  1. GLIVEC [Suspect]
     Active Substance: IMATINIB MESYLATE
     Indication: GASTROINTESTINAL STROMAL TUMOUR
     Dosage: UNK
     Route: 048
     Dates: start: 201401

REACTIONS (6)
  - Cough [Recovering/Resolving]
  - Hypoxia [Recovering/Resolving]
  - Lung disorder [Recovering/Resolving]
  - Dyspnoea exertional [Recovering/Resolving]
  - Drug-induced liver injury [Unknown]
  - Organising pneumonia [Recovering/Resolving]
